FAERS Safety Report 21057293 (Version 1)
Quarter: 2022Q3

REPORT INFORMATION
  Report Type: Spontaneous
  Country: US (occurrence: None)
  Receive Date: 20220707
  Receipt Date: 20220707
  Transmission Date: 20221026
  Serious: Yes (Disabling, Other)
  Sender: FDA-Public Use
  Company Number: None

PATIENT
  Age: 20 Year
  Sex: Female
  Weight: 49.5 kg

DRUGS (3)
  1. MEDERMA ADVANCED SCAR [Suspect]
     Active Substance: ALLANTOIN
     Indication: Scar
     Dates: start: 20220604, end: 20220606
  2. Clindamycin phosphate lotion [Concomitant]
  3. VITAMIN E [Concomitant]
     Active Substance: .ALPHA.-TOCOPHEROL

REACTIONS (11)
  - Erythema [None]
  - Rash [None]
  - Urticaria [None]
  - Throat tightness [None]
  - Dyspnoea [None]
  - Folliculitis [None]
  - Pruritus [None]
  - Scar [None]
  - Pain [None]
  - Emotional distress [None]
  - Skin discolouration [None]

NARRATIVE: CASE EVENT DATE: 20220607
